FAERS Safety Report 4415616-6 (Version None)
Quarter: 2004Q2

REPORT INFORMATION
  Report Type: 
  Country: None (occurrence: None)
  Receive Date: 20040630
  Receipt Date: 20040303
  Transmission Date: 20050107
  Serious: Yes (Other)
  Sender: FDA-Public Use
  Company Number: 2004002562

PATIENT
  Age: 54 Year
  Sex: Female
  Weight: 63.9572 kg

DRUGS (6)
  1. ZOLOFT [Suspect]
     Indication: DEPRESSION
     Dosage: 25 MG DAILY ORAL
     Route: 048
     Dates: start: 20031205, end: 20031216
  2. LEVOTHYROXINE SODIUM [Concomitant]
  3. IRBESARTAN [Concomitant]
  4. HYDROCHLOROTHIAZIDE [Concomitant]
  5. ALBUTEROL SULFATE [Concomitant]
  6. LORATADINE [Concomitant]

REACTIONS (9)
  - AGITATION [None]
  - BURNING SENSATION [None]
  - EMOTIONAL DISORDER [None]
  - RESTLESSNESS [None]
  - SLEEP DISORDER [None]
  - SUICIDAL IDEATION [None]
  - SUICIDE ATTEMPT [None]
  - WEIGHT DECREASED [None]
  - WEIGHT INCREASED [None]
